FAERS Safety Report 14353459 (Version 2)
Quarter: 2018Q1

REPORT INFORMATION
  Report Type: Spontaneous
  Country: CN (occurrence: CN)
  Receive Date: 20180105
  Receipt Date: 20180228
  Transmission Date: 20180509
  Serious: Yes (Other)
  Sender: FDA-Public Use
  Company Number: CN-SUN PHARMACEUTICAL INDUSTRIES LTD-2017R1-158717

PATIENT
  Age: 66 Year
  Sex: Male

DRUGS (3)
  1. APATINIB [Suspect]
     Active Substance: APATINIB
     Dosage: 500 MG, DAILY
     Route: 048
  2. APATINIB [Suspect]
     Active Substance: APATINIB
     Indication: NON-SMALL CELL LUNG CANCER
     Dosage: 750 MG, DAILY
     Route: 048
     Dates: start: 20150619
  3. DOCETAXEL. [Suspect]
     Active Substance: DOCETAXEL
     Indication: NON-SMALL CELL LUNG CANCER
     Dosage: 60 MG/M2, D1, EVERY 3 WEEKS)
     Route: 065

REACTIONS (2)
  - Disease progression [Unknown]
  - Therapeutic response decreased [Unknown]
